FAERS Safety Report 23895796 (Version 2)
Quarter: 2024Q2

REPORT INFORMATION
  Report Type: Spontaneous
  Country: RU (occurrence: RU)
  Receive Date: 20240524
  Receipt Date: 20240611
  Transmission Date: 20240716
  Serious: No
  Sender: FDA-Public Use
  Company Number: RU-BAYER-2024A072125

PATIENT
  Age: 37 Year
  Sex: Female

DRUGS (2)
  1. DIENOGEST\ESTRADIOL VALERATE [Suspect]
     Active Substance: DIENOGEST\ESTRADIOL VALERATE
     Indication: Contraception
     Dosage: UNK
     Dates: start: 202308
  2. DIENOGEST\ESTRADIOL VALERATE [Suspect]
     Active Substance: DIENOGEST\ESTRADIOL VALERATE
     Indication: Heavy menstrual bleeding

REACTIONS (6)
  - Ovarian cyst [None]
  - Abnormal uterine bleeding [None]
  - Uterine leiomyoma [None]
  - Adenomyosis [None]
  - Ovarian adenoma [None]
  - Suspected counterfeit product [None]
